FAERS Safety Report 23719056 (Version 3)
Quarter: 2024Q2

REPORT INFORMATION
  Report Type: Spontaneous
  Country: US (occurrence: US)
  Receive Date: 20240408
  Receipt Date: 20240619
  Transmission Date: 20240715
  Serious: Yes (Life-Threatening, Hospitalization, Other)
  Sender: FDA-Public Use
  Company Number: US-BAYER-2024A050271

PATIENT
  Age: 68 Year
  Sex: Female

DRUGS (5)
  1. ALEVE [Interacting]
     Active Substance: NAPROXEN SODIUM
     Indication: Pain
     Dosage: 4 DF
     Route: 048
     Dates: end: 202303
  2. BAYER LOW DOSE [Interacting]
     Active Substance: ASPIRIN
     Indication: Prophylaxis
     Dosage: UNK
     Route: 048
     Dates: start: 2021
  3. CARVEDILOL [Concomitant]
     Active Substance: CARVEDILOL
     Indication: Prophylaxis
     Dosage: 25 MG, BID
     Route: 048
     Dates: start: 2021
  4. LOSARTAN [Concomitant]
     Active Substance: LOSARTAN
     Indication: Prophylaxis
     Dosage: 25 MG, QD
     Route: 048
     Dates: start: 2021
  5. ATORVASTATIN [Concomitant]
     Active Substance: ATORVASTATIN
     Indication: Prophylaxis
     Dosage: 80 MG, QD
     Route: 048
     Dates: start: 2021

REACTIONS (3)
  - Ulcer haemorrhage [Recovered/Resolved]
  - Labelled drug-drug interaction issue [None]
  - Incorrect product administration duration [None]
